FAERS Safety Report 15434385 (Version 3)
Quarter: 2018Q4

REPORT INFORMATION
  Report Type: Report from Study
  Country: AR (occurrence: AR)
  Receive Date: 20180927
  Receipt Date: 20181116
  Transmission Date: 20190204
  Serious: Yes (Other)
  Sender: FDA-Public Use
  Company Number: AR-ROCHE-2188505

PATIENT
  Age: 72 Year
  Sex: Male
  Weight: 80.8 kg

DRUGS (6)
  1. LEVOTHYROXINE. [Concomitant]
     Active Substance: LEVOTHYROXINE
     Route: 048
     Dates: start: 20180920, end: 20181025
  2. PREDNISOLONE ACETATE. [Concomitant]
     Active Substance: PREDNISOLONE ACETATE
     Route: 047
     Dates: start: 20180920, end: 20181018
  3. FINASTERIDE. [Concomitant]
     Active Substance: FINASTERIDE
     Route: 048
     Dates: start: 201704
  4. LEVOTHYROXINE. [Concomitant]
     Active Substance: LEVOTHYROXINE
     Route: 048
     Dates: start: 20181025
  5. ATROPINE. [Concomitant]
     Active Substance: ATROPINE
     Route: 047
     Dates: start: 20180920, end: 20180927
  6. ATEZOLIZUMAB. [Suspect]
     Active Substance: ATEZOLIZUMAB
     Indication: RENAL CELL CARCINOMA
     Dosage: ON 30/AUG/2018, MOST RECENT DOSE OF ATEZOLIZUMAB WAS RECEIVED PRIOR TO ONSET OF ANTERIOR UVEITIS AT
     Route: 042
     Dates: start: 20180406

REACTIONS (1)
  - Iridocyclitis [Recovering/Resolving]

NARRATIVE: CASE EVENT DATE: 20180920
